FAERS Safety Report 7463538-9 (Version None)
Quarter: 2011Q2

REPORT INFORMATION
  Report Type: 
  Country: None (occurrence: None)
  Receive Date: 20110506
  Receipt Date: 20110426
  Transmission Date: 20111010
  Serious: Yes (Hospitalization)
  Sender: FDA-Public Use
  Company Number: FR-GENENTECH-315581

PATIENT
  Sex: Female

DRUGS (8)
  1. RITUXAN [Suspect]
     Dosage: UNK
     Route: 042
  2. ATARAX [Concomitant]
     Indication: PRODUCT USED FOR UNKNOWN INDICATION
     Dosage: 1 DF, UNK
     Dates: start: 20110208, end: 20110208
  3. ZYRTEC [Concomitant]
     Indication: PRODUCT USED FOR UNKNOWN INDICATION
     Dosage: 1 DF, UNK
     Dates: start: 20110208, end: 20110208
  4. RITUXAN [Suspect]
     Dosage: UNK
     Route: 042
  5. NICARDIPINE HCL [Suspect]
     Indication: HYPERTENSION
     Dosage: 1 DF, UNK
     Route: 048
     Dates: start: 20110208, end: 20110208
  6. ACETAMINOPHEN [Concomitant]
     Indication: PRODUCT USED FOR UNKNOWN INDICATION
     Dosage: 1 DF, UNK
     Dates: start: 20110208, end: 20110208
  7. RITUXAN [Suspect]
     Indication: RHEUMATOID ARTHRITIS
     Dosage: 150 MG, UNK
     Route: 042
     Dates: start: 20110208, end: 20110208
  8. SOLU-MEDROL [Concomitant]
     Indication: PRODUCT USED FOR UNKNOWN INDICATION
     Dosage: 1 DF, UNK
     Route: 042
     Dates: start: 20110208, end: 20110208

REACTIONS (3)
  - HYPERTENSION [None]
  - SUBMAXILLARY GLAND ENLARGEMENT [None]
  - PAROTID GLAND ENLARGEMENT [None]
